FAERS Safety Report 10423600 (Version 1)
Quarter: 2014Q3

REPORT INFORMATION
  Report Type: Spontaneous
  Country: US (occurrence: US)
  Receive Date: 20140902
  Receipt Date: 20140902
  Transmission Date: 20150326
  Serious: No
  Sender: FDA-Public Use
  Company Number: US-US-EMD SERONO, INC.-7315929

PATIENT
  Sex: Female

DRUGS (1)
  1. REBIF [Suspect]
     Active Substance: INTERFERON BETA-1A
     Indication: PRODUCT USED FOR UNKNOWN INDICATION
     Dates: start: 201305

REACTIONS (5)
  - Feeling of body temperature change [Unknown]
  - Fungal infection [Not Recovered/Not Resolved]
  - Pollakiuria [Unknown]
  - Musculoskeletal stiffness [Unknown]
  - Pyrexia [Not Recovered/Not Resolved]
